FAERS Safety Report 20720310 (Version 5)
Quarter: 2022Q4

REPORT INFORMATION
  Report Type: Report from Study
  Country: US (occurrence: US)
  Receive Date: 20220418
  Receipt Date: 20221209
  Transmission Date: 20230113
  Serious: Yes (Hospitalization, Other)
  Sender: FDA-Public Use
  Company Number: US-BRISTOL-MYERS SQUIBB COMPANY-2022-019340

PATIENT
  Age: 65 Year
  Sex: Female

DRUGS (3)
  1. ZEPOSIA [Suspect]
     Active Substance: OZANIMOD HYDROCHLORIDE
     Indication: Multiple sclerosis
     Dosage: START DATE ALSO REPORTED AS 01-SEP-2021
     Route: 048
     Dates: start: 20210521, end: 20220202
  2. ZEPOSIA [Suspect]
     Active Substance: OZANIMOD HYDROCHLORIDE
     Route: 048
     Dates: start: 20220219
  3. ZEPOSIA [Suspect]
     Active Substance: OZANIMOD HYDROCHLORIDE
     Dosage: DAILY
     Route: 048
     Dates: start: 20210517, end: 20221114

REACTIONS (9)
  - Kidney infection [Unknown]
  - Rash [Not Recovered/Not Resolved]
  - Urinary tract infection [Unknown]
  - Multiple sclerosis relapse [Unknown]
  - White blood cell count increased [Unknown]
  - Gastrointestinal disorder [Unknown]
  - Pain [Unknown]
  - Hepatic enzyme increased [Unknown]
  - Memory impairment [Unknown]

NARRATIVE: CASE EVENT DATE: 20211223
